FAERS Safety Report 6164192-9 (Version None)
Quarter: 2009Q2

REPORT INFORMATION
  Report Type: 
  Country: None (occurrence: None)
  Receive Date: 20090422
  Receipt Date: 20090420
  Transmission Date: 20091009
  Serious: Yes (Life-Threatening, Hospitalization)
  Sender: FDA-Public Use
  Company Number: JP-SANOFI-SYNTHELABO-A01200804451

PATIENT
  Sex: Male

DRUGS (5)
  1. RADIATION THERAPY [Concomitant]
     Dosage: UNK
  2. AVASTIN [Suspect]
     Route: 041
  3. ISOVORIN [Suspect]
     Route: 041
  4. FLUOROURACIL [Suspect]
     Route: 042
  5. ELPLAT [Suspect]
     Indication: COLON CANCER
     Route: 041

REACTIONS (1)
  - SMALL INTESTINAL PERFORATION [None]
